FAERS Safety Report 25064636 (Version 1)
Quarter: 2025Q1

REPORT INFORMATION
  Report Type: Spontaneous
  Country: KR (occurrence: KR)
  Receive Date: 20250311
  Receipt Date: 20250311
  Transmission Date: 20250409
  Serious: Yes (Other)
  Sender: ALCON
  Company Number: KR-SANMEDPRD-2025-KOR-001986

PATIENT

DRUGS (1)
  1. RHOPRESSA [Suspect]
     Active Substance: NETARSUDIL MESYLATE
     Indication: Glaucoma
     Route: 047
     Dates: start: 20250107

REACTIONS (3)
  - Uveitis [Unknown]
  - Vision blurred [Unknown]
  - Ocular hyperaemia [Unknown]

NARRATIVE: CASE EVENT DATE: 20250101
